FAERS Safety Report 24916072 (Version 1)
Quarter: 2025Q1

REPORT INFORMATION
  Report Type: Report from Study
  Country: US (occurrence: US)
  Receive Date: 20250203
  Receipt Date: 20250203
  Transmission Date: 20250409
  Serious: Yes (Hospitalization)
  Sender: GILEAD
  Company Number: US-GILEAD-2025-0701760

PATIENT
  Sex: Female

DRUGS (1)
  1. SACITUZUMAB GOVITECAN-HZIY [Suspect]
     Active Substance: SACITUZUMAB GOVITECAN-HZIY
     Indication: Breast cancer
     Route: 065
     Dates: end: 20241205

REACTIONS (5)
  - Lymphadenopathy [Unknown]
  - Hypotension [Unknown]
  - Vomiting [Unknown]
  - Diarrhoea [Unknown]
  - Food poisoning [Unknown]
